FAERS Safety Report 6969715-5 (Version None)
Quarter: 2010Q3

REPORT INFORMATION
  Report Type: 
  Country: None (occurrence: None)
  Receive Date: 20100908
  Receipt Date: 20100831
  Transmission Date: 20110219
  Serious: Yes (Hospitalization)
  Sender: FDA-Public Use
  Company Number: US-BIOGENIDEC-2010BI030438

PATIENT
  Age: 25 Year
  Sex: Male
  Weight: 78 kg

DRUGS (4)
  1. TYSABRI [Suspect]
     Indication: MULTIPLE SCLEROSIS
     Route: 042
     Dates: start: 20090112
  2. OXYCONTIN [Concomitant]
     Indication: HEADACHE
  3. ANXIETY MEDICATION (NOS) [Concomitant]
     Indication: DEPRESSION
     Dates: start: 20090101
  4. NEXIUM [Concomitant]
     Indication: PROPHYLAXIS

REACTIONS (4)
  - ABASIA [None]
  - FOOT FRACTURE [None]
  - STREPTOCOCCAL INFECTION [None]
  - VISION BLURRED [None]
